FAERS Safety Report 12398097 (Version 1)
Quarter: 2016Q2

REPORT INFORMATION
  Report Type: Spontaneous
  Country: US (occurrence: None)
  Receive Date: 20160523
  Receipt Date: 20160523
  Transmission Date: 20160815
  Serious: Yes (Hospitalization)
  Sender: FDA-Public Use
  Company Number: None

PATIENT
  Age: 31 Year
  Sex: Male

DRUGS (1)
  1. PEGASPARAGINASE [Suspect]
     Active Substance: PEGASPARGASE
     Indication: NEOPLASM MALIGNANT
     Route: 042
     Dates: start: 20151215, end: 20151215

REACTIONS (3)
  - Infusion related reaction [None]
  - Drug hypersensitivity [None]
  - Cavernous sinus thrombosis [None]

NARRATIVE: CASE EVENT DATE: 20151215
